FAERS Safety Report 14002957 (Version 1)
Quarter: 2017Q3

REPORT INFORMATION
  Report Type: Spontaneous
  Country: US (occurrence: US)
  Receive Date: 20170922
  Receipt Date: 20170922
  Transmission Date: 20171128
  Serious: Yes (Other)
  Sender: FDA-Public Use
  Company Number: US-TAIHO ONCOLOGY INC-EU-2017-01252

PATIENT
  Age: 78 Year
  Sex: Male
  Weight: 52.21 kg

DRUGS (14)
  1. LONSURF [Suspect]
     Active Substance: TIPIRACIL HYDROCHLORIDE\TRIFLURIDINE
     Indication: METASTASES TO LIVER
  2. ZOVIRAX [Concomitant]
     Active Substance: ACYCLOVIR
     Indication: ORAL HERPES
     Dosage: AS REQUIRED
     Route: 061
     Dates: start: 20141111
  3. CENTRUM SILVER [Concomitant]
     Active Substance: MINERALS\VITAMINS
     Route: 048
  4. NAPROXEN SODIUM. [Concomitant]
     Active Substance: NAPROXEN SODIUM
     Route: 048
     Dates: start: 20150107
  5. AMBIEN [Concomitant]
     Active Substance: ZOLPIDEM TARTRATE
     Indication: INSOMNIA
     Dosage: QHS
     Route: 048
     Dates: start: 20160114
  6. LOMOTIL [Concomitant]
     Active Substance: ATROPINE SULFATE\DIPHENOXYLATE HYDROCHLORIDE
     Indication: DIARRHOEA
     Dosage: AS REQUIRED
     Route: 048
     Dates: start: 20150911
  7. PYRIDOXINE [Concomitant]
     Active Substance: PYRIDOXINE
     Route: 048
     Dates: start: 20111123
  8. IMODIUM [Concomitant]
     Active Substance: LOPERAMIDE HYDROCHLORIDE
     Indication: DIARRHOEA
     Dosage: 1 MG PER 5 ML
     Route: 048
     Dates: start: 20150911
  9. PRAVASTATIN SODIUM. [Concomitant]
     Active Substance: PRAVASTATIN SODIUM
     Dosage: QHS
     Route: 048
     Dates: start: 20141014
  10. ZITHROMAX [Concomitant]
     Active Substance: AZITHROMYCIN DIHYDRATE
     Route: 048
     Dates: start: 20170615
  11. FERROUS SULFATE. [Concomitant]
     Active Substance: FERROUS SULFATE
     Route: 048
     Dates: start: 20170515
  12. MAGNESIUM OXIDE. [Concomitant]
     Active Substance: MAGNESIUM OXIDE
     Route: 048
     Dates: start: 20161012
  13. LONSURF [Suspect]
     Active Substance: TIPIRACIL HYDROCHLORIDE\TRIFLURIDINE
     Indication: COLORECTAL CANCER METASTATIC
     Dosage: CYCLE 2 STARTED ON 26 AUG 2017
     Route: 048
     Dates: start: 201707, end: 20170906
  14. PARACETAMOL/HYDROCODONE BITARTRATE [Concomitant]
     Indication: PAIN
     Dosage: 5/325 MG 1 TAB EVERY 4-6 HOURS
     Route: 048
     Dates: start: 20151022

REACTIONS (8)
  - Gait disturbance [Unknown]
  - Nausea [Unknown]
  - Disease progression [Unknown]
  - Vomiting [Unknown]
  - Haemoglobin decreased [Unknown]
  - Haematocrit decreased [Unknown]
  - Feeling abnormal [Unknown]
  - Diarrhoea [Unknown]

NARRATIVE: CASE EVENT DATE: 201707
